FAERS Safety Report 11942555 (Version 1)
Quarter: 2016Q1

REPORT INFORMATION
  Report Type: Spontaneous
  Country: US (occurrence: US)
  Receive Date: 20160125
  Receipt Date: 20160125
  Transmission Date: 20160526
  Serious: No
  Sender: FDA-Public Use
  Company Number: US-UNITED THERAPEUTICS-UNT-2015-006209

PATIENT
  Sex: Female
  Weight: 165.53 kg

DRUGS (5)
  1. LETAIRIS [Concomitant]
     Active Substance: AMBRISENTAN
     Indication: PRODUCT USED FOR UNKNOWN INDICATION
  2. REMODULIN [Suspect]
     Active Substance: TREPROSTINIL
     Indication: PULMONARY ARTERIAL HYPERTENSION
     Dosage: 0.00225 ?G/KG/MIN, CONTINUING
     Route: 041
     Dates: start: 20150428
  3. ADCIRCA [Concomitant]
     Active Substance: TADALAFIL
     Indication: PRODUCT USED FOR UNKNOWN INDICATION
  4. REMODULIN [Suspect]
     Active Substance: TREPROSTINIL
     Dosage: 0.00225 ?G/KG/MIN, CONTINUING
     Route: 041
     Dates: start: 20150523
  5. REMODULIN [Suspect]
     Active Substance: TREPROSTINIL
     Dosage: 0.00725 ?G/KG/MIN, CONTINUING
     Route: 041
     Dates: start: 20150523

REACTIONS (7)
  - Dermatitis contact [Unknown]
  - Neck pain [Unknown]
  - Dyspnoea [Not Recovered/Not Resolved]
  - Nausea [Recovering/Resolving]
  - Headache [Unknown]
  - Pain in jaw [Unknown]
  - Diarrhoea [Unknown]

NARRATIVE: CASE EVENT DATE: 2015
